FAERS Safety Report 7406702-7 (Version None)
Quarter: 2011Q2

REPORT INFORMATION
  Report Type: 
  Country: None (occurrence: None)
  Receive Date: 20110406
  Receipt Date: 20110406
  Transmission Date: 20111010
  Serious: No
  Sender: FDA-Public Use
  Company Number: None

PATIENT
  Age: 60 Year
  Sex: Male

DRUGS (13)
  1. PREDNISONE [Concomitant]
  2. AMLODIPINE [Concomitant]
  3. SIMVASTATIN [Concomitant]
  4. REVLIMID [Suspect]
     Indication: MULTIPLE MYELOMA
     Dosage: 10MG DAILY ORALLY
     Route: 048
     Dates: start: 20100201, end: 20110101
  5. MORPHINE SULFATE [Concomitant]
  6. ZOLPIDEM [Concomitant]
  7. LISINOPRIL AND HYDROCHLOROTHIAZIDE [Concomitant]
  8. VIAGRA [Concomitant]
  9. METFORMIN [Concomitant]
  10. REVLIMID [Suspect]
     Indication: MULTIPLE MYELOMA
     Dosage: 25MG DAILY PO PRESENT
     Route: 048
     Dates: start: 20110201
  11. GILPIZIDE [Concomitant]
  12. HYDROCODONE BITARTRATE AND ACETAMINOPHEN [Concomitant]
  13. METOCLOPRAMIDE [Concomitant]

REACTIONS (2)
  - SKIN DISCOLOURATION [None]
  - PAIN IN EXTREMITY [None]
